FAERS Safety Report 9815028 (Version 2)
Quarter: 2014Q4

REPORT INFORMATION
  Report Type: Spontaneous
  Country: BR (occurrence: BR)
  Receive Date: 20140114
  Receipt Date: 20141015
  Transmission Date: 20150529
  Serious: Yes (Other)
  Sender: FDA-Public Use
  Company Number: BR-AMGEN-BRASP2014001889

PATIENT
  Age: 74 Year
  Sex: Female
  Weight: 42 kg

DRUGS (5)
  1. DIABINESE [Concomitant]
     Active Substance: CHLORPROPAMIDE
     Dosage: 1 TABLET/DAY
     Route: 048
     Dates: start: 201402
  2. INSULIN [Concomitant]
     Active Substance: INSULIN NOS
     Indication: DIABETES MELLITUS
     Dosage: 12 MG/DAY
     Dates: start: 201312
  3. OSTEOFORM                          /00751501/ [Concomitant]
     Dosage: 1 TABLET/WEEK
  4. ENBREL [Suspect]
     Active Substance: ETANERCEPT
     Indication: RHEUMATOID ARTHRITIS
     Dosage: 50 MG, ONCE WEEKLY
     Route: 058
     Dates: end: 201406
  5. CAPTOPRIL. [Concomitant]
     Active Substance: CAPTOPRIL
     Indication: HYPERTENSION
     Dosage: 2 TABLETS/DAY
     Dates: start: 2007

REACTIONS (3)
  - Pain [Unknown]
  - Hypoglycaemia [Unknown]
  - Seizure [Unknown]

NARRATIVE: CASE EVENT DATE: 2013
